FAERS Safety Report 16645900 (Version 2)
Quarter: 2019Q4

REPORT INFORMATION
  Report Type: Spontaneous
  Country: JP (occurrence: JP)
  Receive Date: 20190730
  Receipt Date: 20191203
  Transmission Date: 20200122
  Serious: Yes (Other)
  Sender: FDA-Public Use
  Company Number: JP-BRISTOL-MYERS SQUIBB COMPANY-BMS-2019-072837

PATIENT
  Age: 8 Decade
  Sex: Female

DRUGS (1)
  1. ORENCIA [Suspect]
     Active Substance: ABATACEPT
     Indication: RHEUMATOID ARTHRITIS
     Dosage: 125 MILLIGRAM
     Route: 065
     Dates: start: 2018

REACTIONS (7)
  - Malaise [Unknown]
  - Extrasystoles [Unknown]
  - Off label use [Unknown]
  - Chest pain [Unknown]
  - Cough [Unknown]
  - Arthralgia [Unknown]
  - Movement disorder [Unknown]
